FAERS Safety Report 8277305-X (Version None)
Quarter: 2012Q2

REPORT INFORMATION
  Report Type: 
  Country: None (occurrence: None)
  Receive Date: 20120412
  Receipt Date: 20120406
  Transmission Date: 20120825
  Serious: Yes (Other)
  Sender: FDA-Public Use
  Company Number: JP-GLAXOSMITHKLINE-B0775031A

PATIENT
  Sex: Male

DRUGS (3)
  1. REQUIP [Suspect]
     Dosage: 6MG PER DAY
     Route: 048
  2. CABERGOLINE [Concomitant]
     Route: 048
  3. REQUIP [Suspect]
     Indication: PRODUCT USED FOR UNKNOWN INDICATION
     Dosage: .25MG PER DAY
     Route: 048
     Dates: start: 20080424

REACTIONS (3)
  - PNEUMONIA [None]
  - PLEURAL EFFUSION [None]
  - CHEST X-RAY ABNORMAL [None]
